FAERS Safety Report 9812581 (Version 1)
Quarter: 2014Q1

REPORT INFORMATION
  Report Type: Report from Study
  Country: US (occurrence: US)
  Receive Date: 20140113
  Receipt Date: 20140113
  Transmission Date: 20141002
  Serious: Yes (Other)
  Sender: FDA-Public Use
  Company Number: US-ROCHE-1330555

PATIENT
  Sex: Female
  Weight: 35.7 kg

DRUGS (2)
  1. NUTROPIN AQ [Suspect]
     Indication: GROWTH HORMONE DEFICIENCY
     Route: 058
     Dates: end: 20130807
  2. NUTROPIN AQ [Suspect]
     Dosage: THERAPY RESTART ON 07/AUG/2013
     Route: 058

REACTIONS (6)
  - Drug dose omission [Unknown]
  - Arthralgia [Unknown]
  - Headache [Unknown]
  - Pain in extremity [Unknown]
  - Musculoskeletal pain [Unknown]
  - Vision blurred [Unknown]
